FAERS Safety Report 25896613 (Version 1)
Quarter: 2025Q4

REPORT INFORMATION
  Report Type: Spontaneous
  Country: US (occurrence: US)
  Receive Date: 20251008
  Receipt Date: 20251008
  Transmission Date: 20260118
  Serious: Yes (Life-Threatening, Other)
  Sender: PURDUE
  Company Number: US-NAPPMUNDI-GBR-2025-0129425

PATIENT
  Age: 65 Year
  Sex: Male

DRUGS (3)
  1. MORPHINE SULFATE [Suspect]
     Active Substance: MORPHINE SULFATE
     Indication: Pain
     Dosage: PCA AT 1MG/HR WITH A 0.5 MG Q15 MINUTE DOSE
     Route: 037
  2. MORPHINE SULFATE [Suspect]
     Active Substance: MORPHINE SULFATE
     Indication: Pain
     Dosage: PCA AT 1MG/HR WITH A 0.5 MG Q15 MINUTE DOSE
     Route: 037
  3. FENTANYL [Suspect]
     Active Substance: FENTANYL
     Indication: Pain
     Dosage: 100 MCG/HR
     Route: 065

REACTIONS (2)
  - Respiratory depression [Unknown]
  - Catheter site infection [Unknown]
